FAERS Safety Report 24546911 (Version 2)
Quarter: 2024Q4

REPORT INFORMATION
  Report Type: Spontaneous
  Country: BR (occurrence: BR)
  Receive Date: 20241024
  Receipt Date: 20241202
  Transmission Date: 20250114
  Serious: Yes (Other)
  Sender: NOVO NORDISK
  Company Number: BR-NOVOPROD-1301788

PATIENT
  Age: 65 Year
  Sex: Male

DRUGS (3)
  1. SAXENDA [Suspect]
     Active Substance: LIRAGLUTIDE
     Indication: Product used for unknown indication
     Dosage: 3(UNIT NOT REPORTED)
  2. SAXENDA [Suspect]
     Active Substance: LIRAGLUTIDE
     Dosage: DOSAGE WAS ADJUSTED
  3. MESALAMINE [Concomitant]
     Active Substance: MESALAMINE
     Indication: Product used for unknown indication
     Dosage: UNK

REACTIONS (6)
  - Cholecystectomy [Unknown]
  - Diarrhoea [Unknown]
  - Abdominal pain [Unknown]
  - Eructation [Unknown]
  - Flatulence [Unknown]
  - Abdominal distension [Unknown]
